FAERS Safety Report 14318411 (Version 4)
Quarter: 2018Q1

REPORT INFORMATION
  Report Type: Spontaneous
  Country: DE (occurrence: DE)
  Receive Date: 20171222
  Receipt Date: 20180320
  Transmission Date: 20180509
  Serious: Yes (Life-Threatening, Other)
  Sender: FDA-Public Use
  Company Number: DE-GLAXOSMITHKLINE-DE2017GSK197710

PATIENT
  Age: 64 Year
  Sex: Female
  Weight: 79 kg

DRUGS (16)
  1. VOLTAREN [Suspect]
     Active Substance: DICLOFENAC SODIUM
     Dosage: 100 MG, QD
     Route: 048
     Dates: start: 20020101
  2. VOLTAREN [Suspect]
     Active Substance: DICLOFENAC SODIUM
     Dosage: 100 UNK, UNK
     Route: 048
     Dates: start: 20171001
  3. NOVALGINA [Concomitant]
     Active Substance: METAMIZOLE SODIUM
     Indication: PAIN
  4. TRIAMCINOLONE [Concomitant]
     Active Substance: TRIAMCINOLONE
     Dosage: UNK
     Route: 065
  5. VOLTAREN [Suspect]
     Active Substance: DICLOFENAC SODIUM
     Dosage: UNK
     Dates: start: 20170630
  6. VOLTAREN [Suspect]
     Active Substance: DICLOFENAC SODIUM
     Dosage: 100 MG, UNK (ON DEMAND)
     Route: 048
  7. CORTISON [Concomitant]
     Active Substance: CORTISONE ACETATE
     Indication: PAIN
     Dosage: 5 MG, 50 MG
     Route: 065
  8. NOVALGINA [Concomitant]
     Active Substance: METAMIZOLE SODIUM
     Indication: ANAPHYLACTIC SHOCK
     Dosage: UNK
     Route: 065
  9. IBUPROFEN. [Concomitant]
     Active Substance: IBUPROFEN
     Indication: PAIN
     Dosage: UNK
     Route: 065
  10. TRIAMCINOLONE [Concomitant]
     Active Substance: TRIAMCINOLONE
     Indication: PAIN
     Dosage: UNK
     Route: 065
  11. VOLTAREN [Suspect]
     Active Substance: DICLOFENAC SODIUM
     Indication: PAIN
     Dosage: 100 MG, QD
     Route: 048
     Dates: start: 2002
  12. VOLTAREN [Suspect]
     Active Substance: DICLOFENAC SODIUM
     Indication: MUSCULOSKELETAL PAIN
     Dosage: 100 MG, UNK (ON DEMAND)
     Route: 048
     Dates: start: 2002
  13. VOLTAREN [Suspect]
     Active Substance: DICLOFENAC SODIUM
     Dosage: 100 MG, QOD OVER A PERIOD OF 7 DAYS
     Route: 048
     Dates: start: 201710
  14. VOLTAREN [Suspect]
     Active Substance: DICLOFENAC SODIUM
     Indication: DRUG PROVOCATION TEST
     Dosage: UNK
     Route: 065
  15. CORTISON [Concomitant]
     Active Substance: CORTISONE ACETATE
     Indication: ANAPHYLACTIC SHOCK
  16. VOLTAREN [Suspect]
     Active Substance: DICLOFENAC SODIUM
     Dosage: 100 MG, QD
     Route: 048
     Dates: start: 20020101

REACTIONS (25)
  - Anaphylactic shock [Recovered/Resolved]
  - Visual impairment [Recovered/Resolved]
  - Paraesthesia [Recovered/Resolved]
  - Speech disorder [Recovered/Resolved]
  - Nausea [Recovered/Resolved]
  - Hypersensitivity [Unknown]
  - Thirst [Recovered/Resolved]
  - Paraesthesia [Unknown]
  - Dysstasia [Recovered/Resolved]
  - Asthenia [Recovered/Resolved]
  - Hypersensitivity [Unknown]
  - Throat irritation [Recovered/Resolved]
  - Peak expiratory flow rate decreased [Unknown]
  - Erythema of eyelid [Recovered/Resolved]
  - Peak expiratory flow rate decreased [Recovered/Resolved]
  - Pain [Recovered/Resolved]
  - Restlessness [Recovered/Resolved]
  - Drug ineffective [Unknown]
  - Feeling abnormal [Recovered/Resolved]
  - Dyspnoea [Recovered/Resolved]
  - Abdominal pain upper [Recovered/Resolved]
  - Pharyngeal oedema [Recovered/Resolved]
  - Eyelid oedema [Recovered/Resolved]
  - Feeling hot [Recovered/Resolved]
  - Eyelid oedema [Unknown]

NARRATIVE: CASE EVENT DATE: 201610
